FAERS Safety Report 13046383 (Version 9)
Quarter: 2018Q2

REPORT INFORMATION
  Report Type: Report from Study
  Country: BR (occurrence: BR)
  Receive Date: 20161220
  Receipt Date: 20180622
  Transmission Date: 20180711
  Serious: Yes (Hospitalization, Other)
  Sender: FDA-Public Use
  Company Number: PHHY2015BR156036

PATIENT
  Age: 30 Year
  Sex: Male
  Weight: 63 kg

DRUGS (6)
  1. FOLIC ACID. [Concomitant]
     Active Substance: FOLIC ACID
     Indication: SICKLE CELL ANAEMIA
     Dosage: 1 DF, QD
     Route: 048
  2. ASA [Concomitant]
     Active Substance: ASPIRIN
     Indication: PRODUCT USED FOR UNKNOWN INDICATION
     Route: 065
  3. DESFERAL [Concomitant]
     Active Substance: DEFEROXAMINE MESYLATE
     Indication: PRODUCT USED FOR UNKNOWN INDICATION
     Route: 065
  4. DIPIRONA [Concomitant]
     Active Substance: METAMIZOLE
     Indication: PRODUCT USED FOR UNKNOWN INDICATION
     Route: 065
  5. EXJADE [Suspect]
     Active Substance: DEFERASIROX
     Indication: SICKLE CELL ANAEMIA
     Dosage: 3 DF (25 MG/KG), QD
     Route: 048
  6. EXJADE [Suspect]
     Active Substance: DEFERASIROX
     Indication: IRON METABOLISM DISORDER
     Dosage: 1500 MG, QD
     Route: 048
     Dates: start: 2013

REACTIONS (40)
  - Pneumonia [Recovering/Resolving]
  - Diarrhoea [Recovering/Resolving]
  - Abdominal pain upper [Not Recovered/Not Resolved]
  - Pyrexia [Recovering/Resolving]
  - Dandruff [Not Recovered/Not Resolved]
  - Vomiting [Recovering/Resolving]
  - Decreased appetite [Unknown]
  - Hair growth abnormal [Unknown]
  - Weight decreased [Unknown]
  - Musculoskeletal discomfort [Unknown]
  - Liver disorder [Unknown]
  - Fatigue [Unknown]
  - Malaise [Unknown]
  - Pain in extremity [Unknown]
  - Seborrhoea [Unknown]
  - Dry skin [Unknown]
  - Abdominal pain [Recovered/Resolved]
  - Sickle cell anaemia with crisis [Unknown]
  - Kidney infection [Recovering/Resolving]
  - Abdominal discomfort [Unknown]
  - Gastritis [Recovering/Resolving]
  - Cough [Recovering/Resolving]
  - Nausea [Recovering/Resolving]
  - General physical health deterioration [Unknown]
  - Increased appetite [Unknown]
  - Erythema [Unknown]
  - Pruritus [Unknown]
  - Retching [Unknown]
  - Haemoglobin decreased [Unknown]
  - Dyspnoea [Recovering/Resolving]
  - Anaemia [Recovering/Resolving]
  - Skin warm [Unknown]
  - Yellow skin [Recovering/Resolving]
  - Drug ineffective [Unknown]
  - Pain [Recovered/Resolved]
  - Peripheral swelling [Not Recovered/Not Resolved]
  - Alopecia [Not Recovered/Not Resolved]
  - Constipation [Unknown]
  - Limb discomfort [Unknown]
  - Movement disorder [Unknown]

NARRATIVE: CASE EVENT DATE: 201710
